FAERS Safety Report 25141804 (Version 1)
Quarter: 2025Q1

REPORT INFORMATION
  Report Type: Spontaneous
  Country: FR (occurrence: FR)
  Receive Date: 20250331
  Receipt Date: 20250331
  Transmission Date: 20250408
  Serious: Yes (Other)
  Sender: BAYER HEALTHCARE PHARMACEUTICALS INC.
  Company Number: FR-BAYER-2025A040452

PATIENT
  Sex: Male

DRUGS (1)
  1. NUBEQA [Suspect]
     Active Substance: DAROLUTAMIDE
     Dosage: 300 MG, QD/ 1 TABLET/DAY

REACTIONS (4)
  - Hallucination [Recovered/Resolved]
  - C-reactive protein increased [None]
  - Confusional state [Recovered/Resolved]
  - Product use issue [None]
